FAERS Safety Report 5015306-5 (Version None)
Quarter: 2006Q2

REPORT INFORMATION
  Report Type: 
  Country: None (occurrence: None)
  Receive Date: 20060530
  Receipt Date: 20060530
  Transmission Date: 20061013
  Serious: Yes (Disabling)
  Sender: FDA-Public Use
  Company Number: None

PATIENT
  Age: 81 Year
  Sex: Female

DRUGS (2)
  1. RETAPLASE [Suspect]
     Dates: start: 20050609, end: 20050610
  2. ENOXAPARIN SODIUM [Suspect]
     Dosage: 1MG/KG Q 12 HOURS
     Dates: end: 20050610

REACTIONS (10)
  - ANAEMIA [None]
  - ARTHRALGIA [None]
  - DEEP VEIN THROMBOSIS [None]
  - GROIN PAIN [None]
  - HAEMATOMA [None]
  - HYPOTENSION [None]
  - PAIN IN EXTREMITY [None]
  - RENAL FAILURE ACUTE [None]
  - RENAL TUBULAR NECROSIS [None]
  - RETROPERITONEAL HAEMORRHAGE [None]
